FAERS Safety Report 10787292 (Version 28)
Quarter: 2025Q4

REPORT INFORMATION
  Report Type: Report from Study
  Country: CA (occurrence: CA)
  Receive Date: 20150211
  Receipt Date: 20251211
  Transmission Date: 20260117
  Serious: Yes (Other)
  Sender: ROCHE
  Company Number: CA-ROCHE-1535957

PATIENT
  Age: 51 Year
  Sex: Female

DRUGS (21)
  1. XOLAIR [Suspect]
     Active Substance: OMALIZUMAB
     Indication: Asthma
     Dosage: 375 MG, BIW
     Route: 058
     Dates: start: 20130327
  2. XOLAIR [Suspect]
     Active Substance: OMALIZUMAB
     Dosage: UNK
     Route: 058
  3. XOLAIR [Suspect]
     Active Substance: OMALIZUMAB
     Dosage: UNK
     Route: 058
  4. XOLAIR [Suspect]
     Active Substance: OMALIZUMAB
     Dosage: UNK
     Route: 058
  5. XOLAIR [Suspect]
     Active Substance: OMALIZUMAB
     Dosage: 375 MG, BIW
     Route: 058
     Dates: start: 20180718
  6. XOLAIR [Suspect]
     Active Substance: OMALIZUMAB
     Dosage: 375 MG, BIW
     Route: 058
     Dates: start: 20181129, end: 20190926
  7. XOLAIR [Suspect]
     Active Substance: OMALIZUMAB
     Dosage: 375 MG, BIW
     Route: 058
     Dates: start: 20200805
  8. XOLAIR [Suspect]
     Active Substance: OMALIZUMAB
     Dosage: 300 MG, EVERY 4 WEEKS
     Route: 058
  9. XOLAIR [Suspect]
     Active Substance: OMALIZUMAB
     Route: 058
     Dates: start: 20200807
  10. XOLAIR [Suspect]
     Active Substance: OMALIZUMAB
     Route: 058
  11. XOLAIR [Suspect]
     Active Substance: OMALIZUMAB
     Route: 058
  12. XOLAIR [Suspect]
     Active Substance: OMALIZUMAB
     Route: 058
  13. XOLAIR [Suspect]
     Active Substance: OMALIZUMAB
     Route: 058
     Dates: start: 20240405
  14. XOLAIR [Suspect]
     Active Substance: OMALIZUMAB
     Route: 058
     Dates: end: 20251122
  15. SINGULAIR [Concomitant]
     Active Substance: MONTELUKAST SODIUM
     Indication: Product used for unknown indication
  16. LIPITOR [Concomitant]
     Active Substance: ATORVASTATIN CALCIUM
     Indication: Product used for unknown indication
  17. PREDNISONE [Concomitant]
     Active Substance: PREDNISONE
     Indication: Product used for unknown indication
  18. CETIRIZINE HYDROCHLORIDE [Concomitant]
     Active Substance: CETIRIZINE HYDROCHLORIDE
     Indication: Product used for unknown indication
  19. OZEMPIC [Concomitant]
     Active Substance: SEMAGLUTIDE
  20. METFORMIN [Concomitant]
     Active Substance: METFORMIN HYDROCHLORIDE
  21. JARDIANCE [Concomitant]
     Active Substance: EMPAGLIFLOZIN

REACTIONS (25)
  - Forced expiratory volume decreased [Not Recovered/Not Resolved]
  - Middle insomnia [Unknown]
  - Malaise [Unknown]
  - Dyspnoea [Unknown]
  - Total lung capacity decreased [Unknown]
  - Vital capacity decreased [Unknown]
  - Lung disorder [Unknown]
  - Weight decreased [Unknown]
  - Pollakiuria [Unknown]
  - Rhinorrhoea [Unknown]
  - Nasopharyngitis [Unknown]
  - Heart rate increased [Unknown]
  - Respiratory rate increased [Unknown]
  - Bronchial hyperreactivity [Unknown]
  - Abdominal pain upper [Unknown]
  - Influenza like illness [Unknown]
  - Headache [Unknown]
  - Productive cough [Unknown]
  - Obstructive airways disorder [Unknown]
  - Asthma [Recovering/Resolving]
  - Wheezing [Unknown]
  - Blood pressure increased [Unknown]
  - Inappropriate schedule of product administration [Unknown]
  - Pyrexia [Unknown]
  - Cough [Unknown]

NARRATIVE: CASE EVENT DATE: 20150116
